FAERS Safety Report 16745071 (Version 2)
Quarter: 2019Q3

REPORT INFORMATION
  Report Type: Spontaneous
  Country: JP (occurrence: JP)
  Receive Date: 20190827
  Receipt Date: 20190930
  Transmission Date: 20191005
  Serious: Yes (Hospitalization, Other)
  Sender: FDA-Public Use
  Company Number: JP-VIIV HEALTHCARE LIMITED-JP2019JPN153336

PATIENT
  Age: 30 Year
  Sex: Male

DRUGS (6)
  1. DOGMATYL [Concomitant]
     Active Substance: SULPIRIDE
     Indication: PSYCHIATRIC SYMPTOM
     Dosage: 50 MG, TID
     Dates: start: 2018, end: 20190821
  2. LEXOTAN [Concomitant]
     Active Substance: BROMAZEPAM
     Indication: PSYCHIATRIC SYMPTOM
     Dosage: 5 MG, BID
     Dates: start: 2018
  3. TIVICAY [Suspect]
     Active Substance: DOLUTEGRAVIR SODIUM
     Indication: HIV INFECTION
     Dosage: 50 MG, QD
     Route: 048
     Dates: start: 20190410, end: 20190731
  4. DEPAS (ETIZOLAM) [Concomitant]
     Active Substance: ETIZOLAM
     Indication: PSYCHIATRIC SYMPTOM
     Dosage: 0.5 MG, UNK
     Dates: start: 2018, end: 20190821
  5. JZOLOFT [Concomitant]
     Active Substance: SERTRALINE HYDROCHLORIDE
     Indication: PSYCHIATRIC SYMPTOM
     Dosage: 75 MG, QD
     Dates: start: 2018, end: 20190821
  6. DESCOVY [Concomitant]
     Active Substance: EMTRICITABINE\TENOFOVIR ALAFENAMIDE FUMARATE
     Indication: HIV INFECTION
     Dosage: 25 MG, QD
     Dates: start: 20190410

REACTIONS (3)
  - Pancytopenia [Recovering/Resolving]
  - Gastrointestinal haemorrhage [Unknown]
  - Melaena [Unknown]

NARRATIVE: CASE EVENT DATE: 20190731
